FAERS Safety Report 21419944 (Version 2)
Quarter: 2022Q4

REPORT INFORMATION
  Report Type: Report from Study
  Country: US (occurrence: US)
  Receive Date: 20221007
  Receipt Date: 20221207
  Transmission Date: 20230113
  Serious: No
  Sender: FDA-Public Use
  Company Number: US-ABBVIE-4136255

PATIENT
  Age: 78 Year
  Sex: Female
  Weight: 66.224 kg

DRUGS (4)
  1. RINVOQ [Suspect]
     Active Substance: UPADACITINIB
     Indication: Product used for unknown indication
     Route: 048
     Dates: start: 20191111
  2. IV Bisphosphonate [Concomitant]
     Indication: Product used for unknown indication
  3. antihypertensive medication, [Concomitant]
     Indication: Product used for unknown indication
  4. UNSPECIFIED INGREDIENT [Concomitant]
     Active Substance: UNSPECIFIED INGREDIENT
     Indication: Product used for unknown indication

REACTIONS (1)
  - Eyelid cyst [Unknown]

NARRATIVE: CASE EVENT DATE: 20220401
